FAERS Safety Report 14345299 (Version 3)
Quarter: 2018Q4

REPORT INFORMATION
  Report Type: Report from Study
  Country: JP (occurrence: JP)
  Receive Date: 20180103
  Receipt Date: 20181128
  Transmission Date: 20190204
  Serious: Yes (Other)
  Sender: FDA-Public Use
  Company Number: JP-BRISTOL-MYERS SQUIBB COMPANY-BMS-2017-026475

PATIENT
  Age: 66 Year
  Sex: Male
  Weight: 57 kg

DRUGS (18)
  1. ELOTUZUMAB. [Suspect]
     Active Substance: ELOTUZUMAB
     Indication: PLASMA CELL MYELOMA
     Dosage: 600 MG, QWK
     Route: 041
     Dates: start: 20170220, end: 20170220
  2. ELOTUZUMAB. [Suspect]
     Active Substance: ELOTUZUMAB
     Indication: PRODUCT USED FOR UNKNOWN INDICATION
     Dosage: 10 MG/KG, Q2WK
     Route: 041
     Dates: start: 20171122, end: 20171122
  3. LENALIDOMIDE [Suspect]
     Active Substance: LENALIDOMIDE
     Indication: PRODUCT USED FOR UNKNOWN INDICATION
     Dosage: 15 MG, QD
     Route: 048
     Dates: start: 20171122, end: 20171212
  4. LENALIDOMIDE [Suspect]
     Active Substance: LENALIDOMIDE
     Indication: PLASMA CELL MYELOMA
     Dosage: 10 MG, QD
     Route: 048
     Dates: start: 20170220, end: 20170301
  5. DEXAMETHASONE. [Concomitant]
     Active Substance: DEXAMETHASONE
     Indication: PLASMA CELL MYELOMA
     Dosage: 28 MG, ONE TIME DOSE
     Route: 048
     Dates: start: 20170220, end: 20170220
  6. DEXAMETHASONE. [Concomitant]
     Active Substance: DEXAMETHASONE
     Indication: PRODUCT USED FOR UNKNOWN INDICATION
     Dosage: 28 MG, QWK
     Route: 065
     Dates: start: 20170419, end: 20170510
  7. DEXAMETHASONE. [Suspect]
     Active Substance: DEXAMETHASONE
     Indication: PRODUCT USED FOR UNKNOWN INDICATION
     Dosage: 8 MG, QWK
     Route: 041
     Dates: start: 20170419, end: 20170510
  8. LENALIDOMIDE [Suspect]
     Active Substance: LENALIDOMIDE
     Indication: PRODUCT USED FOR UNKNOWN INDICATION
     Dosage: 10 MG, QD
     Route: 048
     Dates: start: 20170329, end: 20170712
  9. DEXAMETHASONE. [Suspect]
     Active Substance: DEXAMETHASONE
     Indication: PRODUCT USED FOR UNKNOWN INDICATION
     Dosage: 48 MG, Q2WK
     Route: 041
     Dates: start: 20170614, end: 20170712
  10. LENALIDOMIDE [Suspect]
     Active Substance: LENALIDOMIDE
     Indication: PRODUCT USED FOR UNKNOWN INDICATION
     Dosage: 5 MG, QD
     Route: 048
     Dates: start: 20170322, end: 20170328
  11. DEXAMETHASONE. [Suspect]
     Active Substance: DEXAMETHASONE
     Indication: PLASMA CELL MYELOMA
     Dosage: 8 MG, ONE TIME DOSE
     Route: 041
     Dates: start: 20170220, end: 20170220
  12. DEXAMETHASONE. [Suspect]
     Active Substance: DEXAMETHASONE
     Indication: PRODUCT USED FOR UNKNOWN INDICATION
     Dosage: 40 MG, Q2WK
     Route: 041
     Dates: start: 20171122, end: 20171122
  13. DEXAMETHASONE. [Concomitant]
     Active Substance: DEXAMETHASONE
     Indication: PRODUCT USED FOR UNKNOWN INDICATION
     Dosage: 40 MG, Q2WK
     Route: 065
     Dates: start: 20170621, end: 20170802
  14. DENOSUMAB [Suspect]
     Active Substance: DENOSUMAB
     Indication: PRODUCT USED FOR UNKNOWN INDICATION
     Route: 065
  15. ELOTUZUMAB. [Suspect]
     Active Substance: ELOTUZUMAB
     Indication: PRODUCT USED FOR UNKNOWN INDICATION
     Dosage: 10 MG/KG, QWK
     Route: 041
     Dates: start: 20170419, end: 20170607
  16. DEXAMETHASONE. [Concomitant]
     Active Substance: DEXAMETHASONE
     Indication: PRODUCT USED FOR UNKNOWN INDICATION
     Dosage: 40 MG, QWK
     Route: 065
     Dates: start: 20170322, end: 20170405
  17. DEXAMETHASONE. [Suspect]
     Active Substance: DEXAMETHASONE
     Indication: PRODUCT USED FOR UNKNOWN INDICATION
     Dosage: 48 MG, QWK
     Route: 041
     Dates: start: 20170517, end: 20170607
  18. ELOTUZUMAB. [Suspect]
     Active Substance: ELOTUZUMAB
     Indication: PRODUCT USED FOR UNKNOWN INDICATION
     Dosage: 10 MG/KG, QWK
     Route: 041
     Dates: start: 20170614

REACTIONS (3)
  - Oedema peripheral [Recovered/Resolved]
  - Rash [Recovered/Resolved]
  - Enterocolitis [Recovered/Resolved]

NARRATIVE: CASE EVENT DATE: 20170224
